FAERS Safety Report 18201184 (Version 2)
Quarter: 2021Q1

REPORT INFORMATION
  Report Type: Spontaneous
  Country: MX (occurrence: MX)
  Receive Date: 20200827
  Receipt Date: 20210119
  Transmission Date: 20210419
  Serious: Yes (Life-Threatening, Hospitalization, Congenital Anomaly, Other)
  Sender: FDA-Public Use
  Company Number: MX-B.I. PHARMACEUTICALS,INC./RIDGEFIELD-2020-BI-044111

PATIENT
  Age: 42 Year
  Sex: Female

DRUGS (2)
  1. JARDIANCE [Suspect]
     Active Substance: EMPAGLIFLOZIN
     Indication: PRODUCT USED FOR UNKNOWN INDICATION
     Route: 048
  2. EMPAGLIFLOZIN;METFORMIN [Suspect]
     Active Substance: EMPAGLIFLOZIN\METFORMIN HYDROCHLORIDE
     Indication: PRODUCT USED FOR UNKNOWN INDICATION
     Route: 048

REACTIONS (20)
  - Metabolic acidosis [Recovered/Resolved]
  - pH body fluid abnormal [Unknown]
  - Insulin C-peptide decreased [Unknown]
  - Systemic inflammatory response syndrome [Unknown]
  - Ketoacidosis [Unknown]
  - Neurological decompensation [Recovered/Resolved]
  - Hysterectomy [Recovered/Resolved]
  - PCO2 abnormal [Unknown]
  - Uterine haemorrhage [Unknown]
  - Nervous system disorder [Unknown]
  - Tachycardia [Unknown]
  - Blood insulin decreased [Unknown]
  - Electrolyte imbalance [Recovered/Resolved]
  - Dysmenorrhoea [Unknown]
  - Disorientation [Unknown]
  - General physical health deterioration [Unknown]
  - PO2 abnormal [Unknown]
  - Leukocytosis [Unknown]
  - Blood bicarbonate abnormal [Unknown]
  - Fasting [Unknown]

NARRATIVE: CASE EVENT DATE: 201610
